FAERS Safety Report 9806142 (Version 1)
Quarter: 2014Q1

REPORT INFORMATION
  Report Type: Spontaneous
  Country: DE (occurrence: DE)
  Receive Date: 20140109
  Receipt Date: 20140109
  Transmission Date: 20141002
  Serious: Yes (Other)
  Sender: FDA-Public Use
  Company Number: DE-PFIZER INC-2014004556

PATIENT
  Age: 67 Year
  Sex: Male

DRUGS (1)
  1. SORTIS [Suspect]
     Dosage: 10 MG, TWICE DAILY
     Dates: start: 2004

REACTIONS (3)
  - Coronary artery disease [Unknown]
  - Myalgia [Unknown]
  - Pruritus [Unknown]
